FAERS Safety Report 25416316 (Version 1)
Quarter: 2025Q2

REPORT INFORMATION
  Report Type: Spontaneous
  Country: FR (occurrence: FR)
  Receive Date: 20250610
  Receipt Date: 20250610
  Transmission Date: 20250716
  Serious: Yes (Hospitalization)
  Sender: ACCORD
  Company Number: None

PATIENT
  Age: 74 Year
  Sex: Male
  Weight: 92 kg

DRUGS (10)
  1. AZACITIDINE [Suspect]
     Active Substance: AZACITIDINE
     Indication: Myelodysplastic syndrome
     Dates: start: 20250204, end: 20250210
  2. COUMADIN [Concomitant]
     Active Substance: WARFARIN SODIUM
  3. NEORAL [Concomitant]
     Active Substance: CYCLOSPORINE
  4. CELLCEPT [Concomitant]
     Active Substance: MYCOPHENOLATE MOFETIL
  5. SOLUPRED [Concomitant]
  6. LERCANIDIPINE [Concomitant]
     Active Substance: LERCANIDIPINE
  7. BUMETANIDE [Concomitant]
     Active Substance: BUMETANIDE
  8. FEBUXOSTAT [Concomitant]
     Active Substance: FEBUXOSTAT
  9. ATORVASTATIN [Concomitant]
     Active Substance: ATORVASTATIN
  10. ZOPICLONE [Concomitant]
     Active Substance: ZOPICLONE

REACTIONS (1)
  - Febrile bone marrow aplasia [Unknown]

NARRATIVE: CASE EVENT DATE: 20250319
